FAERS Safety Report 22697634 (Version 2)
Quarter: 2023Q4

REPORT INFORMATION
  Report Type: Spontaneous
  Country: US (occurrence: US)
  Receive Date: 20230712
  Receipt Date: 20231028
  Transmission Date: 20240110
  Serious: No
  Sender: FDA-Public Use
  Company Number: US-TEVA-2023-US-2902301

PATIENT
  Age: 45 Year
  Sex: Female

DRUGS (11)
  1. AJOVY [Suspect]
     Active Substance: FREMANEZUMAB-VFRM
     Indication: Product used for unknown indication
     Dosage: STRENGTH: 225 MG / 1.5 ML
     Route: 058
     Dates: start: 202301
  2. VITAMIN D3 [Concomitant]
     Active Substance: CHOLECALCIFEROL
     Indication: Product used for unknown indication
     Dosage: 5000 UNITS, DAILY
     Route: 048
  3. DULOXETINE [Concomitant]
     Active Substance: DULOXETINE
     Indication: Product used for unknown indication
     Dosage: 60 MILLIGRAM DAILY;
     Route: 048
  4. ELETRIPTAN [Concomitant]
     Active Substance: ELETRIPTAN
     Indication: Migraine
     Dosage: 40 MILLIGRAM DAILY; MAY REPEAT ONE TIME AFTER 2 HOURS IF NEEDED.
     Route: 048
  5. IBUPROFEN [Concomitant]
     Active Substance: IBUPROFEN
     Indication: Pain
     Dosage: 400 MILLIGRAM DAILY; AS NEEDED FOR MILD PAIN (PAIN SCALE 1-3/10) OR MODERATE PAIN (PAIN SCALE 4-6/10
     Route: 048
  6. MAGNESIUM CITRATE [Concomitant]
     Active Substance: MAGNESIUM CITRATE
     Indication: Product used for unknown indication
     Dosage: 100MG AS NEEDED
     Route: 048
  7. METOCLOPRAMIDE [Concomitant]
     Active Substance: METOCLOPRAMIDE
     Indication: Product used for unknown indication
     Dosage: 20 MILLIGRAM DAILY; TAKE ONE TABLET UP TO TWICE DAILY AS NEEDED. DO NOT TAKE MORE THAN THREE DAYS PE
     Route: 048
  8. VITAMINS [Concomitant]
     Active Substance: VITAMINS
     Indication: Product used for unknown indication
     Dosage: DAILY
     Route: 048
  9. NORTRIPTYLINE [Concomitant]
     Active Substance: NORTRIPTYLINE
     Indication: Product used for unknown indication
     Dosage: 50 MILLIGRAM DAILY; NIGHTLY
     Route: 048
  10. Rizatriptan (MAXALT) [Concomitant]
     Indication: Product used for unknown indication
     Dosage: TAKE 1 TABLET (10MG TOTAL) BY MOUTH AS NEEDED FOR MIGRAINE. MAY REPEAT IN 2 HR, MAX 20MG A DAY.
     Route: 048
  11. TOPAMAX [Concomitant]
     Active Substance: TOPIRAMATE
     Indication: Product used for unknown indication
     Dosage: 1 IN THE AM AND 2 PM
     Route: 048

REACTIONS (5)
  - Injection site bruising [Unknown]
  - Device leakage [Unknown]
  - Device defective [Unknown]
  - Device malfunction [Unknown]
  - Product supply issue [Unknown]

NARRATIVE: CASE EVENT DATE: 20230101
